FAERS Safety Report 24699175 (Version 1)
Quarter: 2024Q4

REPORT INFORMATION
  Report Type: Spontaneous
  Country: US (occurrence: US)
  Receive Date: 20241205
  Receipt Date: 20241205
  Transmission Date: 20250115
  Serious: No
  Sender: ROCHE
  Company Number: US-ROCHE-10000143393

PATIENT
  Sex: Male
  Weight: 26.76 kg

DRUGS (10)
  1. XOLAIR [Suspect]
     Active Substance: OMALIZUMAB
     Indication: Food allergy
     Dosage: BACK OF THE ARM, ROTATING SITES, IN THE FAT?AUTOINJECTOR
     Route: 058
     Dates: start: 2024
  2. PEPCID [Concomitant]
     Active Substance: FAMOTIDINE
     Indication: Abdominal discomfort
     Dosage: 2.5ML OF 40MG/5M
     Route: 048
  3. QVAR [Concomitant]
     Active Substance: BECLOMETHASONE DIPROPIONATE
     Indication: Asthma
     Dosage: 1 PUFF DAILY
     Route: 055
  4. PROAIR HFA [Concomitant]
     Active Substance: ALBUTEROL SULFATE
     Indication: Asthma
     Dosage: RESCUE INHALER
     Route: 055
  5. MOMETASONE [Concomitant]
     Active Substance: MOMETASONE
     Indication: Hypersensitivity
     Dosage: NASAL SPRAY?1 SPRAY EACH NOSTRIL, DAILY
     Route: 045
  6. OLOPATADINE [Concomitant]
     Active Substance: OLOPATADINE
     Indication: Hypersensitivity
     Dosage: 1 SPRAY PER NOSTRIL DAILY?NASAL SPRAY
     Route: 045
  7. XYZAL [Concomitant]
     Active Substance: LEVOCETIRIZINE DIHYDROCHLORIDE
     Indication: Hypersensitivity
     Dosage: AT NIGHT TIME
     Route: 048
  8. ALBUTEROL [Concomitant]
     Active Substance: ALBUTEROL
     Dosage: NEBULIZER SOLUTION
     Route: 055
  9. BUDESONIDE [Concomitant]
     Active Substance: BUDESONIDE
     Dosage: NEBULIZER SOLUTION
     Route: 055
  10. EPIPEN [Concomitant]
     Active Substance: EPINEPHRINE

REACTIONS (6)
  - Accidental underdose [Unknown]
  - Exposure via skin contact [Unknown]
  - Abdominal discomfort [Not Recovered/Not Resolved]
  - Upper respiratory tract infection [Recovered/Resolved]
  - Needle issue [Unknown]
  - Product complaint [Unknown]

NARRATIVE: CASE EVENT DATE: 20240101
